FAERS Safety Report 16487667 (Version 1)
Quarter: 2019Q3

REPORT INFORMATION
  Report Type: Spontaneous
  Country: US (occurrence: US)
  Receive Date: 20190626
  Receipt Date: 20190626
  Transmission Date: 20191004
  Serious: Yes (Other)
  Sender: FDA-Public Use
  Company Number: None

PATIENT
  Age: 45 Year
  Sex: Female
  Weight: 112.5 kg

DRUGS (10)
  1. PROPRANOLOL [Concomitant]
     Active Substance: PROPRANOLOL HYDROCHLORIDE
  2. NEXIUM [Concomitant]
     Active Substance: ESOMEPRAZOLE MAGNESIUM
  3. LEVOTHYROXINE. [Concomitant]
     Active Substance: LEVOTHYROXINE
  4. VITAMIN D3 [Concomitant]
     Active Substance: CHOLECALCIFEROL
  5. VITAMIN E [Concomitant]
     Active Substance: .ALPHA.-TOCOPHEROL
  6. PIOGLITAZONE. [Concomitant]
     Active Substance: PIOGLITAZONE
  7. PHILLIPS COLON HEALTH [Concomitant]
  8. BUPRONION HCL [Concomitant]
  9. DEXAMETHASONE. [Suspect]
     Active Substance: DEXAMETHASONE
     Indication: BACK PAIN
     Dosage: ?          QUANTITY:30 TABLET(S);OTHER FREQUENCY:BID THEN QD;?
     Route: 048
     Dates: start: 20190619, end: 20190624
  10. RANITIDINE. [Concomitant]
     Active Substance: RANITIDINE

REACTIONS (4)
  - Gastrointestinal disorder [None]
  - Dyspepsia [None]
  - Feeding disorder [None]
  - Burning sensation [None]

NARRATIVE: CASE EVENT DATE: 20190623
